FAERS Safety Report 10968209 (Version 3)
Quarter: 2015Q2

REPORT INFORMATION
  Report Type: Spontaneous
  Country: US (occurrence: US)
  Receive Date: 20150330
  Receipt Date: 20150617
  Transmission Date: 20150821
  Serious: No
  Sender: FDA-Public Use
  Company Number: US-GLAXOSMITHKLINE-US2015041119

PATIENT
  Age: 81 Year
  Sex: Female

DRUGS (2)
  1. SORIATANE [Suspect]
     Active Substance: ACITRETIN
     Dosage: 25 MG, QD
     Route: 048
     Dates: start: 20150120
  2. SORIATANE [Suspect]
     Active Substance: ACITRETIN
     Indication: PUSTULAR PSORIASIS
     Dosage: 25 MG, QD
     Route: 048
     Dates: start: 201412

REACTIONS (2)
  - Blister [Recovering/Resolving]
  - Pustular psoriasis [Unknown]

NARRATIVE: CASE EVENT DATE: 20150327
